FAERS Safety Report 16877368 (Version 1)
Quarter: 2019Q4

REPORT INFORMATION
  Report Type: Report from Study
  Country: US (occurrence: US)
  Receive Date: 20191002
  Receipt Date: 20191002
  Transmission Date: 20200122
  Serious: Yes (Other)
  Sender: FDA-Public Use
  Company Number: US-PFIZER INC-2019419065

PATIENT

DRUGS (3)
  1. RITUXIMAB. [Suspect]
     Active Substance: RITUXIMAB
     Indication: B-CELL LYMPHOMA
     Dosage: 375 MG/M2, CYCLIC (ON DAY 1)
     Route: 042
  2. VINCRISTINE SULFATE. [Suspect]
     Active Substance: VINCRISTINE SULFATE
     Indication: B-CELL LYMPHOMA
     Dosage: 1.4 MG/M2, CYCLIC ((MAXIMUM 2 MG) ON DAYS 1 AND 8, ADMINISTERED FOR A MAXIMUM OF EIGHT 21-DAY CYCLES
     Route: 042
  3. ALISERTIB [Suspect]
     Active Substance: ALISERTIB
     Indication: B-CELL LYMPHOMA
     Dosage: 40 MG, 2X/DAY (ON DAYS 1 TO 7)
     Route: 048

REACTIONS (1)
  - Neutropenia [Unknown]
